FAERS Safety Report 17701702 (Version 3)
Quarter: 2021Q4

REPORT INFORMATION
  Report Type: Spontaneous
  Country: US (occurrence: US)
  Receive Date: 20200424
  Receipt Date: 20211006
  Transmission Date: 20220303
  Serious: Yes (Other)
  Sender: FDA-Public Use
  Company Number: 2020SE53384

PATIENT
  Age: 25266 Day
  Sex: Female

DRUGS (36)
  1. NEXIUM [Suspect]
     Active Substance: ESOMEPRAZOLE MAGNESIUM
     Indication: Gastrooesophageal reflux disease
     Route: 048
     Dates: start: 200803, end: 201606
  2. NEXIUM [Suspect]
     Active Substance: ESOMEPRAZOLE MAGNESIUM
     Indication: Gastrooesophageal reflux disease
     Route: 048
     Dates: start: 2010, end: 2016
  3. NEXIUM [Suspect]
     Active Substance: ESOMEPRAZOLE MAGNESIUM
     Indication: Gastrooesophageal reflux disease
     Dosage: GENERIC
     Route: 065
     Dates: start: 2014
  4. RANITIDINE [Concomitant]
     Active Substance: RANITIDINE
     Indication: Gastrooesophageal reflux disease
     Dates: start: 20190621
  5. CELECOXIB [Concomitant]
     Active Substance: CELECOXIB
     Indication: Pain
     Dates: start: 20200110
  6. LOSARTAN [Concomitant]
     Active Substance: LOSARTAN
     Indication: Blood pressure abnormal
     Dates: start: 20200615
  7. ROSUVASTATIN [Concomitant]
     Active Substance: ROSUVASTATIN
     Indication: Blood cholesterol abnormal
     Dates: start: 20200615
  8. AMRITRIPTYLINE [Concomitant]
     Indication: Antidepressant drug level
     Dates: start: 202008
  9. AMRITRIPTYLINE [Concomitant]
     Indication: Neuralgia
     Dates: start: 202008
  10. METOPROLOL [Concomitant]
     Active Substance: METOPROLOL
     Indication: Blood pressure abnormal
     Dates: start: 202009
  11. AMLODIPINE [Concomitant]
     Active Substance: AMLODIPINE BESYLATE
     Indication: Blood pressure abnormal
     Dates: start: 202009
  12. DEMEROL [Concomitant]
     Active Substance: MEPERIDINE HYDROCHLORIDE
  13. METAMUCIL [Concomitant]
     Active Substance: PLANTAGO SEED
  14. METHOCARBAMOL [Concomitant]
     Active Substance: METHOCARBAMOL
  15. NASONEX [Concomitant]
     Active Substance: MOMETASONE FUROATE
  16. CITALOPRAM HYDROBROMIDE [Concomitant]
     Active Substance: CITALOPRAM HYDROBROMIDE
  17. DETROL [Concomitant]
     Active Substance: TOLTERODINE TARTRATE
  18. DOCUSATE CALCIUM [Concomitant]
     Active Substance: DOCUSATE CALCIUM
  19. ERGOCALCIFEROL [Concomitant]
     Active Substance: ERGOCALCIFEROL
  20. XOPENEX HFA [Concomitant]
     Active Substance: LEVALBUTEROL TARTRATE
  21. RAMIPRIL [Concomitant]
     Active Substance: RAMIPRIL
  22. AMITRIPTYLINE [Concomitant]
     Active Substance: AMITRIPTYLINE
  23. TIZANIDINE HYDROCHLORIDE [Concomitant]
     Active Substance: TIZANIDINE HYDROCHLORIDE
  24. CRESTOR [Concomitant]
     Active Substance: ROSUVASTATIN CALCIUM
  25. NITROSTAT [Concomitant]
     Active Substance: NITROGLYCERIN
  26. CLARITIN [Concomitant]
     Active Substance: LORATADINE
  27. NARCO [Concomitant]
  28. COZAAR [Concomitant]
     Active Substance: LOSARTAN POTASSIUM
  29. TOPROL XL [Concomitant]
     Active Substance: METOPROLOL SUCCINATE
  30. HYZAAR [Concomitant]
     Active Substance: HYDROCHLOROTHIAZIDE\LOSARTAN POTASSIUM
  31. APRESOLINE HYDROCHLORIDE [Concomitant]
     Active Substance: HYDRALAZINE HYDROCHLORIDE
  32. HYGROTON [Concomitant]
     Active Substance: CHLORTHALIDONE
  33. ZANAFLEX [Concomitant]
     Active Substance: TIZANIDINE HYDROCHLORIDE
  34. ALPHAGAN P [Concomitant]
     Active Substance: BRIMONIDINE TARTRATE
  35. LOPRESSOR [Concomitant]
     Active Substance: METOPROLOL TARTRATE
  36. NARCAN [Concomitant]
     Active Substance: NALOXONE HYDROCHLORIDE

REACTIONS (4)
  - Chronic kidney disease [Not Recovered/Not Resolved]
  - Renal failure [Unknown]
  - Nephrogenic anaemia [Unknown]
  - Chronic kidney disease-mineral and bone disorder [Unknown]

NARRATIVE: CASE EVENT DATE: 20140815
